FAERS Safety Report 8994490 (Version 1)
Quarter: 2012Q4

REPORT INFORMATION
  Report Type: Spontaneous
  Country: US (occurrence: None)
  Receive Date: 20121228
  Receipt Date: 20121228
  Transmission Date: 20130627
  Serious: Yes (Hospitalization)
  Sender: FDA-Public Use
  Company Number: None

PATIENT
  Age: 14 Year
  Sex: Female
  Weight: 39 kg

DRUGS (1)
  1. KINERET [Suspect]
     Indication: FEVER
     Dosage: 2.3mg/kg/day daily SC
     Route: 058

REACTIONS (6)
  - Sinusitis [None]
  - Dizziness [None]
  - Decreased appetite [None]
  - Dehydration [None]
  - Hypotension [None]
  - Autonomic nervous system imbalance [None]
